FAERS Safety Report 21615257 (Version 3)
Quarter: 2022Q4

REPORT INFORMATION
  Report Type: Spontaneous
  Country: CZ (occurrence: CZ)
  Receive Date: 20221118
  Receipt Date: 20221226
  Transmission Date: 20230112
  Serious: Yes (Other)
  Sender: FDA-Public Use
  Company Number: CZ-002147023-NVSC2022CZ256498

PATIENT
  Sex: Female

DRUGS (11)
  1. KESIMPTA [Suspect]
     Active Substance: OFATUMUMAB
     Indication: Product used for unknown indication
     Dosage: UNK
     Route: 065
     Dates: start: 20220708
  2. VIGANTOL [Concomitant]
     Indication: Vitamin supplementation
     Dosage: UNK
     Route: 065
  3. LEVOTHYROXINE SODIUM [Concomitant]
     Active Substance: LEVOTHYROXINE SODIUM
     Indication: Hypothyroidism
     Dosage: UNK
     Route: 065
  4. LYRICA [Concomitant]
     Active Substance: PREGABALIN
     Indication: Product used for unknown indication
     Dosage: 20 MG, (LYRICA SOL)
     Route: 065
     Dates: start: 20220812
  5. ULTRACOD [Concomitant]
     Indication: Pain
     Dosage: 1 DOSAGE FORM
     Route: 065
     Dates: start: 20220812
  6. AMITRIPTYLINE [Concomitant]
     Active Substance: AMITRIPTYLINE
     Indication: Product used for unknown indication
     Dosage: 25 MG, QD (0-0-1)
     Route: 065
     Dates: start: 20220812
  7. DEXAMETHASONE [Concomitant]
     Active Substance: DEXAMETHASONE
     Indication: Product used for unknown indication
     Dosage: 4 DOSAGE FORM, QD
     Route: 045
     Dates: start: 20220620
  8. DESLORATADINE [Concomitant]
     Active Substance: DESLORATADINE
     Indication: Product used for unknown indication
     Dosage: 1 DOSAGE FORM, QD (1 TBL FOR THE NIGHT)
     Route: 065
     Dates: start: 20220620
  9. OTOBACID [Concomitant]
     Indication: Product used for unknown indication
     Dosage: 3 DOSAGE FORM, QD (3X DAILY INTO THE RIGHT EAR)
     Route: 001
     Dates: start: 20220620
  10. AMOXICILLIN\CLAVULANATE POTASSIUM [Concomitant]
     Active Substance: AMOXICILLIN\CLAVULANATE POTASSIUM
     Indication: Product used for unknown indication
     Dosage: 1 DOSAGE FORM, Q12H (FOR 7 DAYS)
     Route: 065
     Dates: start: 20220620
  11. AMOXICILLIN [Concomitant]
     Active Substance: AMOXICILLIN
     Indication: Product used for unknown indication
     Dosage: 1 DOSAGE FORM, Q12H (FOR 7 DAYS)
     Route: 065
     Dates: start: 20220620

REACTIONS (6)
  - Leukopenia [Recovered/Resolved]
  - Neutropenia [Recovered/Resolved]
  - Herpes zoster reactivation [Recovered/Resolved]
  - Sensitive skin [Unknown]
  - Migraine [Not Recovered/Not Resolved]
  - Sinusitis [Recovered/Resolved]
